FAERS Safety Report 10261952 (Version 1)
Quarter: 2014Q2

REPORT INFORMATION
  Report Type: Report from Study
  Country: JP (occurrence: JP)
  Receive Date: 20140626
  Receipt Date: 20140626
  Transmission Date: 20141212
  Serious: Yes (Death)
  Sender: FDA-Public Use
  Company Number: JP-ACTELION-A-CH2014-100984

PATIENT
  Age: 46 Year
  Sex: Female
  Weight: 49.6 kg

DRUGS (10)
  1. TRACLEER [Suspect]
     Indication: PULMONARY HYPERTENSION
     Dosage: 62.5 MG, BID
     Route: 048
     Dates: start: 20060106, end: 20060213
  2. TRACLEER [Suspect]
     Dosage: 31.25 MG, OD
     Route: 048
     Dates: start: 20051219, end: 20051225
  3. TRACLEER [Suspect]
     Dosage: 31.25 MG, BID
     Route: 048
     Dates: start: 20051226, end: 20060105
  4. OXYGEN [Concomitant]
  5. FLOLAN [Concomitant]
  6. BERAPROST SODIUM [Concomitant]
  7. FUROSEMIDE [Concomitant]
  8. SPIRONOLACTONE [Concomitant]
  9. PIMOBENDAN [Concomitant]
  10. CANDESARTAN CILEXETIL [Concomitant]

REACTIONS (8)
  - Pulmonary hypertension [Fatal]
  - Liver disorder [Not Recovered/Not Resolved]
  - Drug effect incomplete [Unknown]
  - Gamma-glutamyltransferase increased [Not Recovered/Not Resolved]
  - Blood bilirubin increased [Not Recovered/Not Resolved]
  - Blood alkaline phosphatase increased [Not Recovered/Not Resolved]
  - Aspartate aminotransferase increased [Not Recovered/Not Resolved]
  - Alanine aminotransferase increased [Not Recovered/Not Resolved]
